FAERS Safety Report 5393514-1 (Version None)
Quarter: 2007Q3

REPORT INFORMATION
  Report Type: 
  Country: None (occurrence: None)
  Receive Date: 20070723
  Receipt Date: 20060721
  Transmission Date: 20080115
  Serious: No
  Sender: FDA-Public Use
  Company Number: A0613142A

PATIENT

DRUGS (10)
  1. AVANDIA [Suspect]
     Dosage: 8MG PER DAY
     Route: 048
     Dates: start: 20060401, end: 20060601
  2. GLIPIZIDE [Concomitant]
  3. SYNTHROID [Concomitant]
  4. EVISTA [Concomitant]
  5. WARFARIN SODIUM [Concomitant]
  6. ENALAPRIL MALEATE [Concomitant]
  7. METFORMIN HCL [Concomitant]
  8. SOTALOL HYDROCHLORIDE [Concomitant]
  9. CALCIUM CHLORIDE [Concomitant]
  10. ASPIRIN [Concomitant]

REACTIONS (4)
  - DYSPNOEA [None]
  - FATIGUE [None]
  - FLUID RETENTION [None]
  - OEDEMA PERIPHERAL [None]
